FAERS Safety Report 8280148-4 (Version None)
Quarter: 2012Q2

REPORT INFORMATION
  Report Type: 
  Country: None (occurrence: None)
  Receive Date: 20120412
  Receipt Date: 20120410
  Transmission Date: 20120825
  Serious: Yes (Other)
  Sender: FDA-Public Use
  Company Number: US-GILEAD-2012-0053476

PATIENT
  Age: 40 Year
  Sex: Female

DRUGS (3)
  1. LIPITOR [Concomitant]
  2. ATRIPLA [Concomitant]
  3. RANEXA [Suspect]
     Indication: CHEST PAIN

REACTIONS (5)
  - MICTURITION FREQUENCY DECREASED [None]
  - RHABDOMYOLYSIS [None]
  - CHEST PAIN [None]
  - DIALYSIS [None]
  - CHROMATURIA [None]
